FAERS Safety Report 11837376 (Version 1)
Quarter: 2015Q4

REPORT INFORMATION
  Report Type: Report from Study
  Country: NL (occurrence: NL)
  Receive Date: 20151215
  Receipt Date: 20151215
  Transmission Date: 20160305
  Serious: Yes (Other)
  Sender: FDA-Public Use
  Company Number: NL-AMGEN-NLDSL2015087642

PATIENT
  Age: 83 Year
  Sex: Female

DRUGS (3)
  1. ARANESP [Suspect]
     Active Substance: DARBEPOETIN ALFA
     Indication: ANAEMIA
     Dosage: 1 ML (500 MCG/ML), QWK
     Route: 058
     Dates: start: 20111101
  2. NEUPOGEN [Concomitant]
     Active Substance: FILGRASTIM
     Indication: PRODUCT USED FOR UNKNOWN INDICATION
     Dosage: 30 UNK, QWK
     Route: 058
     Dates: start: 20150618
  3. VITAMIN B [Concomitant]
     Active Substance: VITAMIN B

REACTIONS (2)
  - Respiratory tract infection [Unknown]
  - Intermittent claudication [Unknown]

NARRATIVE: CASE EVENT DATE: 20140728
